FAERS Safety Report 6989953-5 (Version None)
Quarter: 2010Q3

REPORT INFORMATION
  Report Type: 
  Country: None (occurrence: None)
  Receive Date: 20100916
  Receipt Date: 20100319
  Transmission Date: 20110219
  Serious: Yes (Other)
  Sender: FDA-Public Use
  Company Number: US-PFIZER INC-2010036707

PATIENT
  Sex: Female

DRUGS (2)
  1. LYRICA [Suspect]
     Indication: FIBROMYALGIA
     Dosage: ONE IN THE MORNING, ONE IN THE AFTERNOON, AND TWO CAPSULES AT BEDTIME
  2. SKELAXIN [Concomitant]
     Indication: MUSCLE DISORDER
     Dosage: UNK

REACTIONS (8)
  - ACTIVITIES OF DAILY LIVING IMPAIRED [None]
  - ALOPECIA [None]
  - BLOOD CHOLESTEROL INCREASED [None]
  - BLOOD PRESSURE INCREASED [None]
  - LETHARGY [None]
  - OSTEOPOROSIS [None]
  - PAIN [None]
  - STRESS [None]
